FAERS Safety Report 14593009 (Version 1)
Quarter: 2018Q1

REPORT INFORMATION
  Report Type: Report from Study
  Country: IT (occurrence: IT)
  Receive Date: 20180302
  Receipt Date: 20180302
  Transmission Date: 20180509
  Serious: Yes (Death, Other)
  Sender: FDA-Public Use
  Company Number: IT-ASTRAZENECA-2018SE26870

PATIENT
  Sex: Female

DRUGS (1)
  1. FULVESTRANT. [Suspect]
     Active Substance: FULVESTRANT
     Indication: BREAST CANCER
     Dosage: 500 MG ON DAYS 1 AND 15 OF CYCLE 1, AND ON DAY 1 OF SUBSEQUENT CYCLES IN 28-DAY TREATMENT CYCLES
     Route: 030

REACTIONS (1)
  - Death [Fatal]
